FAERS Safety Report 13589446 (Version 1)
Quarter: 2017Q2

REPORT INFORMATION
  Report Type: Spontaneous
  Country: CN (occurrence: CN)
  Receive Date: 20170530
  Receipt Date: 20170530
  Transmission Date: 20170830
  Serious: Yes (Other)
  Sender: FDA-Public Use
  Company Number: CN-APOTEX-2017AP012417

PATIENT
  Age: 66 Year
  Sex: Male

DRUGS (2)
  1. TANDOSPIRONE CITRATE [Suspect]
     Active Substance: TANDOSPIRONE CITRATE
     Indication: DEPRESSION
     Dosage: 10 MG, TID
     Route: 048
     Dates: start: 20170309, end: 20170315
  2. SEROXAT [Suspect]
     Active Substance: PAROXETINE HYDROCHLORIDE
     Indication: DEPRESSION
     Dosage: 20 MG, QD
     Route: 048
     Dates: start: 20170314, end: 20170315

REACTIONS (4)
  - Tremor [Recovering/Resolving]
  - Gait disturbance [Recovering/Resolving]
  - Dyskinesia [Recovering/Resolving]
  - Palpitations [Recovering/Resolving]

NARRATIVE: CASE EVENT DATE: 20170315
